FAERS Safety Report 19010881 (Version 1)
Quarter: 2021Q1

REPORT INFORMATION
  Report Type: Spontaneous
  Country: US (occurrence: US)
  Receive Date: 20210315
  Receipt Date: 20210315
  Transmission Date: 20210420
  Serious: Yes (Hospitalization)
  Sender: FDA-Public Use
  Company Number: US-GLAXOSMITHKLINE-US2021061348

PATIENT
  Age: 59 Year
  Sex: Female

DRUGS (3)
  1. NYSTATIN. [Concomitant]
     Active Substance: NYSTATIN
     Indication: CANDIDA INFECTION
     Dosage: UNK, QID, 155555 UNIT /MM TAKES 5MM
     Dates: start: 20201222
  2. ADVAIR DISKUS [Suspect]
     Active Substance: FLUTICASONE PROPIONATE\SALMETEROL XINAFOATE
     Indication: CHRONIC OBSTRUCTIVE PULMONARY DISEASE
     Dosage: UNK, 500/50 PWD 60
     Dates: start: 2017
  3. SEREVENT DISKUS [Suspect]
     Active Substance: SALMETEROL XINAFOATE
     Indication: CHRONIC OBSTRUCTIVE PULMONARY DISEASE
     Dosage: UNK, INH 60 50MCG
     Dates: start: 20210214, end: 20210223

REACTIONS (5)
  - Candida infection [Recovered/Resolved with Sequelae]
  - Dyspnoea [Recovered/Resolved]
  - Stomatitis [Unknown]
  - Adverse event [Unknown]
  - SARS-CoV-2 test positive [Unknown]

NARRATIVE: CASE EVENT DATE: 20201222
